FAERS Safety Report 5169442-3 (Version None)
Quarter: 2006Q4

REPORT INFORMATION
  Report Type: 
  Country: None (occurrence: None)
  Receive Date: 20061201
  Receipt Date: 20061120
  Transmission Date: 20070319
  Serious: Yes (Life-Threatening, Hospitalization)
  Sender: FDA-Public Use
  Company Number: 2006145222

PATIENT
  Age: 76 Year
  Sex: Male

DRUGS (5)
  1. NORMULEN (DICLOFENAC SODIUM, MISOPROSTOL) [Suspect]
     Dosage: 100MG/0.4MG (2 IN 1 D); ORAL
     Route: 048
     Dates: start: 20051107, end: 20051117
  2. AMOXYCILLIN/CLAVULANIC ACID (AMOXICILLIN, CLAVULANIC ACID) [Suspect]
     Indication: PHLEBITIS
     Dosage: ORAL
     Route: 048
     Dates: start: 20051107, end: 20051121
  3. AMOXYCILLIN/CLAVULANIC ACID (AMOXICILLIN, CLAVULANIC ACID) [Suspect]
     Indication: THROMBOPHLEBITIS
     Dosage: ORAL
     Route: 048
     Dates: start: 20051107, end: 20051121
  4. ENOXAPARIN SODIUM [Suspect]
     Indication: PHLEBITIS
     Dosage: 40 MG, SUBCUTANEOUS
     Route: 058
     Dates: start: 20051107, end: 20051121
  5. ENOXAPARIN SODIUM [Suspect]
     Indication: THROMBOPHLEBITIS
     Dosage: 40 MG, SUBCUTANEOUS
     Route: 058
     Dates: start: 20051107, end: 20051121

REACTIONS (3)
  - HEPATITIS CHOLESTATIC [None]
  - PHLEBITIS [None]
  - THROMBOPHLEBITIS [None]
